FAERS Safety Report 13155838 (Version 1)
Quarter: 2017Q1

REPORT INFORMATION
  Report Type: Spontaneous
  Country: US (occurrence: US)
  Receive Date: 20170126
  Receipt Date: 20170126
  Transmission Date: 20170428
  Serious: No
  Sender: FDA-Public Use
  Company Number: US-ROCHE-1207154

PATIENT
  Age: 43 Year
  Sex: Female
  Weight: 81.72 kg

DRUGS (27)
  1. ZOLOFT [Concomitant]
     Active Substance: SERTRALINE HYDROCHLORIDE
     Indication: AGORAPHOBIA
  2. LAMICTAL [Concomitant]
     Active Substance: LAMOTRIGINE
     Indication: AGORAPHOBIA
  3. ABILIFY [Concomitant]
     Active Substance: ARIPIPRAZOLE
     Indication: AGORAPHOBIA
  4. PRISTIQ EXTENDED-RELEASE [Concomitant]
     Active Substance: DESVENLAFAXINE SUCCINATE
     Dosage: 100 MG IN MORNING, 50 MG IN AFTEROON AND 100 MG AT NIGHT
     Route: 048
  5. PROZAC [Concomitant]
     Active Substance: FLUOXETINE HYDROCHLORIDE
     Indication: AGORAPHOBIA
  6. CELEXA [Concomitant]
     Active Substance: CITALOPRAM HYDROBROMIDE
     Indication: AGORAPHOBIA
  7. CYMBALTA [Concomitant]
     Active Substance: DULOXETINE HYDROCHLORIDE
     Indication: AGORAPHOBIA
  8. LEXAPRO [Concomitant]
     Active Substance: ESCITALOPRAM OXALATE
     Indication: AGORAPHOBIA
  9. ADDERALL XR [Concomitant]
     Active Substance: AMPHETAMINE ASPARTATE\AMPHETAMINE SULFATE\DEXTROAMPHETAMINE SACCHARATE\DEXTROAMPHETAMINE SULFATE
     Route: 065
  10. LAMICTAL [Concomitant]
     Active Substance: LAMOTRIGINE
     Indication: AGORAPHOBIA
  11. IMIPRAMINE [Concomitant]
     Active Substance: IMIPRAMINE
     Indication: AGORAPHOBIA
  12. LUVOX [Concomitant]
     Active Substance: FLUVOXAMINE MALEATE
     Indication: AGORAPHOBIA
  13. DEPAKOTE [Concomitant]
     Active Substance: DIVALPROEX SODIUM
     Indication: AGORAPHOBIA
  14. FOLIC ACID. [Concomitant]
     Active Substance: FOLIC ACID
  15. VALIUM [Suspect]
     Active Substance: DIAZEPAM
     Indication: AGORAPHOBIA
     Route: 065
  16. KLONOPIN [Suspect]
     Active Substance: CLONAZEPAM
     Indication: AGORAPHOBIA
     Route: 065
  17. SEROQUEL XR [Concomitant]
     Active Substance: QUETIAPINE FUMARATE
     Indication: AGORAPHOBIA
     Route: 065
  18. LEVOTHYROXIN [Concomitant]
     Active Substance: LEVOTHYROXINE
  19. PREDNISONE. [Concomitant]
     Active Substance: PREDNISONE
     Route: 065
  20. PAXIL [Concomitant]
     Active Substance: PAROXETINE HYDROCHLORIDE
     Indication: AGORAPHOBIA
  21. TOPAMAX [Concomitant]
     Active Substance: TOPIRAMATE
  22. WELLBUTRIN [Concomitant]
     Active Substance: BUPROPION HYDROCHLORIDE
     Indication: AGORAPHOBIA
  23. XANAX [Concomitant]
     Active Substance: ALPRAZOLAM
     Dosage: 2 TABLET THREE TIMES A DAY
     Route: 065
  24. LISINOPRIL. [Concomitant]
     Active Substance: LISINOPRIL
  25. PRISTIQ EXTENDED-RELEASE [Concomitant]
     Active Substance: DESVENLAFAXINE SUCCINATE
     Indication: AGORAPHOBIA
     Route: 048
  26. TEGRETOL [Concomitant]
     Active Substance: CARBAMAZEPINE
     Indication: AGORAPHOBIA
  27. ANAFRANIL [Concomitant]
     Active Substance: CLOMIPRAMINE HYDROCHLORIDE
     Indication: AGORAPHOBIA

REACTIONS (4)
  - Depression [Unknown]
  - Drug ineffective [Unknown]
  - Crying [Unknown]
  - Agoraphobia [Unknown]

NARRATIVE: CASE EVENT DATE: 201301
